FAERS Safety Report 24308630 (Version 2)
Quarter: 2024Q3

REPORT INFORMATION
  Report Type: Report from Study
  Country: TW (occurrence: TW)
  Receive Date: 20240911
  Receipt Date: 20240917
  Transmission Date: 20241017
  Serious: Yes (Hospitalization)
  Sender: ABBVIE
  Company Number: TW-ABBVIE-5913560

PATIENT
  Age: 71 Year
  Sex: Male

DRUGS (3)
  1. HUMIRA [Suspect]
     Active Substance: ADALIMUMAB
     Indication: Ankylosing spondylitis
     Route: 058
     Dates: start: 20201029, end: 20240828
  2. PIRENOXINE [Concomitant]
     Active Substance: PIRENOXINE
     Indication: Cataract
     Dosage: TIME INTERVAL: 0.33333333 DAYS: (BOTH EYES)
     Route: 047
     Dates: start: 20210826
  3. CLOBETA [Concomitant]
     Active Substance: CLOBETASOL PROPIONATE\COAL TAR
     Indication: Pruritus
     Dosage: CREAM
     Route: 061
     Dates: start: 20201029

REACTIONS (4)
  - Extradural haematoma [Unknown]
  - Cervical vertebral fracture [Unknown]
  - Road traffic accident [Unknown]
  - Paraplegia [Unknown]

NARRATIVE: CASE EVENT DATE: 20240821
